FAERS Safety Report 17629129 (Version 1)
Quarter: 2020Q2

REPORT INFORMATION
  Report Type: Spontaneous
  Country: US (occurrence: US)
  Receive Date: 20200406
  Receipt Date: 20200406
  Transmission Date: 20200713
  Serious: Yes (Other)
  Sender: FDA-Public Use
  Company Number: US-SA-2020SA084237

PATIENT
  Sex: Female

DRUGS (1)
  1. ZANTAC [Suspect]
     Active Substance: RANITIDINE HYDROCHLORIDE
     Dosage: OVER 250 MG DAILY
     Dates: start: 1990, end: 202001

REACTIONS (2)
  - Pancreatic carcinoma [Unknown]
  - Anxiety [Unknown]

NARRATIVE: CASE EVENT DATE: 201803
